FAERS Safety Report 6662459-9 (Version None)
Quarter: 2010Q1

REPORT INFORMATION
  Report Type: 
  Country: None (occurrence: None)
  Receive Date: 20100329
  Receipt Date: 20100316
  Transmission Date: 20100710
  Serious: Yes (Other)
  Sender: FDA-Public Use
  Company Number: 2010SP016390

PATIENT
  Age: 23 Year
  Sex: Female
  Weight: 61.2356 kg

DRUGS (3)
  1. IMPLANON [Suspect]
     Indication: CONTRACEPTION
     Dosage: 1 DF;
     Dates: start: 20100205
  2. LAMICTAL [Suspect]
     Indication: DRUG USE FOR UNKNOWN INDICATION
  3. TOPAMAX [Concomitant]

REACTIONS (3)
  - DRUG INTERACTION [None]
  - GRAND MAL CONVULSION [None]
  - MOBILITY DECREASED [None]
